FAERS Safety Report 25729302 (Version 1)
Quarter: 2025Q3

REPORT INFORMATION
  Report Type: Spontaneous
  Country: MY (occurrence: MY)
  Receive Date: 20250827
  Receipt Date: 20250827
  Transmission Date: 20251020
  Serious: Yes (Hospitalization, Other)
  Sender: PHARMOBEDIENT CONSULTING, LLC
  Company Number: MY-Pharmobedient-000115

PATIENT
  Age: 68 Year
  Sex: Female

DRUGS (3)
  1. HYDROCHLOROTHIAZIDE [Interacting]
     Active Substance: HYDROCHLOROTHIAZIDE
     Indication: Hypertension
     Dates: start: 202111
  2. CARBAMAZEPINE [Interacting]
     Active Substance: CARBAMAZEPINE
     Indication: Partial seizures
     Dosage: SUSTAINED RELEASE
  3. LOSARTAN [Concomitant]
     Active Substance: LOSARTAN
     Indication: Hypertension
     Dates: start: 202111

REACTIONS (2)
  - Hyponatraemia [Recovered/Resolved]
  - Drug interaction [Unknown]

NARRATIVE: CASE EVENT DATE: 20220201
